FAERS Safety Report 12266536 (Version 2)
Quarter: 2016Q2

REPORT INFORMATION
  Report Type: Report from Study
  Country: US (occurrence: US)
  Receive Date: 20160414
  Receipt Date: 20160426
  Transmission Date: 20160815
  Serious: Yes (Death)
  Sender: FDA-Public Use
  Company Number: US-CLINIGEN GROUP PLC/ CLINIGEN HEALTHCARE LTD-US-CLGN-16-00078

PATIENT
  Age: 72 Year
  Sex: Male

DRUGS (2)
  1. VALGCV [Concomitant]
     Indication: PROPHYLAXIS
  2. FOSCARNET?SODIUM [Suspect]
     Active Substance: FOSCARNET SODIUM
     Indication: CYTOMEGALOVIRUS INFECTION

REACTIONS (3)
  - Cytomegalovirus colitis [Fatal]
  - Off label use [Unknown]
  - Oesophagitis [Fatal]
